FAERS Safety Report 17862297 (Version 1)
Quarter: 2020Q2

REPORT INFORMATION
  Report Type: Report from Study
  Country: DE (occurrence: DE)
  Receive Date: 20200605
  Receipt Date: 20200605
  Transmission Date: 20200714
  Serious: Yes (Other)
  Sender: FDA-Public Use
  Company Number: DE-SUN PHARMACEUTICAL INDUSTRIES LTD-2019R1-211725

PATIENT
  Sex: Male

DRUGS (1)
  1. PARACETAMOL [Suspect]
     Active Substance: ACETAMINOPHEN
     Indication: TOOTHACHE
     Dosage: 7.5 GRAM (CORRESPONDING TO 107 MG/KG BODY WEIGHT/ DAY OVER 2 DAYS)
     Route: 065

REACTIONS (3)
  - Overdose [Unknown]
  - Hepatic failure [Unknown]
  - Haemorrhage [Unknown]
